FAERS Safety Report 10184588 (Version 3)
Quarter: 2014Q2

REPORT INFORMATION
  Report Type: Spontaneous
  Country: RU (occurrence: RU)
  Receive Date: 20140521
  Receipt Date: 20140606
  Transmission Date: 20141212
  Serious: Yes (Other)
  Sender: FDA-Public Use
  Company Number: RU-BRISTOL-MYERS SQUIBB COMPANY-20620183

PATIENT
  Age: 35 Year
  Sex: Female

DRUGS (2)
  1. ORENCIA [Suspect]
     Indication: JUVENILE IDIOPATHIC ARTHRITIS
     Route: 042
     Dates: start: 201208, end: 201304
  2. METYPRED [Suspect]

REACTIONS (2)
  - Renal failure chronic [Unknown]
  - Osteonecrosis [Unknown]
